FAERS Safety Report 17550517 (Version 1)
Quarter: 2020Q1

REPORT INFORMATION
  Report Type: Spontaneous
  Country: US (occurrence: US)
  Receive Date: 20200309
  Receipt Date: 20200309
  Transmission Date: 20200409
  Serious: Yes (Hospitalization)
  Sender: FDA-Public Use
  Company Number: None

PATIENT
  Age: 86 Year
  Sex: Male
  Weight: 65.77 kg

DRUGS (2)
  1. ETHAMBUTOL (ETHAMBUTOL HCL 400MG TAB) [Suspect]
     Active Substance: ETHAMBUTOL HYDROCHLORIDE
     Indication: PNEUMONIA
     Route: 048
     Dates: start: 20190101, end: 20190604
  2. RIFABUTIN (RIFABUTIN 150MG CAP) [Suspect]
     Active Substance: RIFABUTIN
     Indication: PNEUMONIA
     Route: 048
     Dates: start: 20190101, end: 20190604

REACTIONS (12)
  - Transaminases increased [None]
  - Feeling abnormal [None]
  - Drug-induced liver injury [None]
  - Alanine aminotransferase increased [None]
  - Therapy cessation [None]
  - Asthenia [None]
  - Abdominal pain upper [None]
  - Vomiting [None]
  - Mental status changes [None]
  - Hepatotoxicity [None]
  - Fatigue [None]
  - Aspartate aminotransferase increased [None]

NARRATIVE: CASE EVENT DATE: 20190604
